FAERS Safety Report 10581608 (Version 2)
Quarter: 2014Q4

REPORT INFORMATION
  Report Type: Spontaneous
  Country: US (occurrence: US)
  Receive Date: 20141113
  Receipt Date: 20141120
  Transmission Date: 20150529
  Serious: Yes (Other)
  Sender: FDA-Public Use
  Company Number: US-PURDUE-USA-2014-0118834

PATIENT
  Age: 52 Year
  Sex: Male

DRUGS (1)
  1. BUTRANS [Suspect]
     Active Substance: BUPRENORPHINE
     Indication: PAIN
     Dosage: 15 MCG/HR, WEEKLY
     Route: 062
     Dates: start: 201410, end: 201410

REACTIONS (8)
  - Application site urticaria [Unknown]
  - Drug effect increased [Unknown]
  - Wrong technique in drug usage process [Recovered/Resolved]
  - Application site rash [Unknown]
  - Palpitations [Unknown]
  - Application site erythema [Recovered/Resolved]
  - Application site pain [Unknown]
  - Limb operation [Unknown]

NARRATIVE: CASE EVENT DATE: 201410
